FAERS Safety Report 11239870 (Version 1)
Quarter: 2015Q3

REPORT INFORMATION
  Report Type: Spontaneous
  Country: US (occurrence: US)
  Receive Date: 20150706
  Receipt Date: 20150706
  Transmission Date: 20151125
  Serious: No
  Sender: FDA-Public Use
  Company Number: US-PFIZER INC-2015218610

PATIENT

DRUGS (5)
  1. NITROGLYCERIN. [Suspect]
     Active Substance: NITROGLYCERIN
  2. ASA [Suspect]
     Active Substance: ASPIRIN
  3. REMODULIN [Suspect]
     Active Substance: TREPROSTINIL
  4. DOBUTAMINE [Suspect]
     Active Substance: DOBUTAMINE\DOBUTAMINE HYDROCHLORIDE
  5. VENTAVIS [Suspect]
     Active Substance: ILOPROST

REACTIONS (1)
  - Drug hypersensitivity [Unknown]
